FAERS Safety Report 7593287-8 (Version None)
Quarter: 2011Q3

REPORT INFORMATION
  Report Type: 
  Country: None (occurrence: None)
  Receive Date: 20110706
  Receipt Date: 20081031
  Transmission Date: 20111222
  Serious: Yes (Death, Hospitalization, Other)
  Sender: FDA-Public Use
  Company Number: US-BAYER-2010-006479

PATIENT
  Age: 77 Year
  Sex: Female
  Weight: 68 kg

DRUGS (15)
  1. TRASYLOL [Suspect]
     Indication: AORTIC VALVE REPLACEMENT
     Dosage: 1 ML, ONCE TEST DOSE
     Route: 042
     Dates: start: 20070320, end: 20070320
  2. TRASYLOL [Suspect]
     Indication: CARDIAC ABLATION
     Dosage: 50ML/HR
     Route: 042
     Dates: start: 20070320, end: 20070320
  3. LASIX [Concomitant]
     Dosage: 40 MG, QD LONG TERM MEDICATION
     Route: 048
  4. VANCOMYCIN [Concomitant]
     Dosage: UNK
     Route: 042
     Dates: start: 20070320, end: 20070320
  5. EPINEPHRINE [Concomitant]
     Dosage: UNK
     Route: 042
     Dates: start: 20070320, end: 20070320
  6. RED BLOOD CELLS [Concomitant]
     Dosage: 2 U, UNK
     Route: 042
     Dates: start: 20070320
  7. AMIODARONE HCL [Concomitant]
     Dosage: 200 MG, QD LONG TERM MEDICATION
     Route: 048
  8. TRASYLOL [Suspect]
     Indication: MITRAL VALVE REPLACEMENT
     Dosage: 100ML LOADING DOSE
     Route: 042
     Dates: start: 20070320, end: 20070320
  9. VERSED [Concomitant]
     Dosage: UNK
     Route: 042
     Dates: start: 20070320, end: 20070320
  10. COUMADIN [Concomitant]
     Dosage: 3 MG, QD LONG TERM MEDICATION
     Route: 048
  11. PROPOFOL [Concomitant]
     Dosage: UNK
     Route: 042
     Dates: start: 20070320, end: 20070320
  12. HEPARIN [Concomitant]
     Dosage: UNK
     Route: 042
     Dates: start: 20070320, end: 20070320
  13. ALTACE [Concomitant]
     Dosage: 5 MG, QD LONG TERM MEDICATION
     Route: 048
  14. PROTAMINE SULFATE [Concomitant]
     Dosage: UNK
     Dates: start: 20070320, end: 20070320
  15. POTASSIUM [Concomitant]
     Dosage: 20 MILLE EQUIVALENT DAILY LONG TERM MEDICATION
     Route: 048

REACTIONS (14)
  - PAIN [None]
  - RENAL FAILURE [None]
  - STRESS [None]
  - ANXIETY [None]
  - FEAR [None]
  - INJURY [None]
  - RENAL IMPAIRMENT [None]
  - RENAL INJURY [None]
  - DEATH [None]
  - MULTI-ORGAN FAILURE [None]
  - ANHEDONIA [None]
  - EMOTIONAL DISORDER [None]
  - UNEVALUABLE EVENT [None]
  - DEPRESSION [None]
